FAERS Safety Report 7475442-0 (Version None)
Quarter: 2011Q2

REPORT INFORMATION
  Report Type: 
  Country: None (occurrence: None)
  Receive Date: 20110512
  Receipt Date: 20110505
  Transmission Date: 20111010
  Serious: Yes (Hospitalization)
  Sender: FDA-Public Use
  Company Number: FR-PFIZER INC-2011096842

PATIENT
  Age: 38 Year
  Sex: Female

DRUGS (5)
  1. MOXIFLOXACIN HCL [Suspect]
     Indication: MYCOBACTERIUM AVIUM COMPLEX INFECTION
     Dosage: 400 MG, 1X/DAY
     Route: 048
     Dates: start: 20100707
  2. AMIKLIN [Concomitant]
     Indication: MYCOBACTERIUM AVIUM COMPLEX INFECTION
     Dosage: UNK
     Dates: start: 20100707
  3. AMINOSALICYLIC ACID [Suspect]
     Indication: MYCOBACTERIUM AVIUM COMPLEX INFECTION
     Dosage: UNK
     Route: 048
     Dates: start: 20100707, end: 20100816
  4. CYCLOSERINE [Suspect]
     Indication: MYCOBACTERIUM AVIUM COMPLEX INFECTION
     Dosage: 250 KIU, 3X/DAY
     Route: 048
     Dates: start: 20100707
  5. ZYVOX [Suspect]
     Indication: MYCOBACTERIUM AVIUM COMPLEX INFECTION
     Dosage: 600 MG, 2X/DAY
     Route: 048
     Dates: start: 20100707

REACTIONS (1)
  - APLASIA PURE RED CELL [None]
